FAERS Safety Report 14601415 (Version 2)
Quarter: 2018Q1

REPORT INFORMATION
  Report Type: Spontaneous
  Country: FR (occurrence: FR)
  Receive Date: 20180305
  Receipt Date: 20180307
  Transmission Date: 20180509
  Serious: Yes (Hospitalization)
  Sender: FDA-Public Use
  Company Number: FR-CONCORDIA PHARMACEUTICALS INC.-E2B_00010300

PATIENT
  Age: 72 Year
  Sex: Male
  Weight: 52 kg

DRUGS (5)
  1. VINCRISTINE HOSPIRA [Suspect]
     Active Substance: VINCRISTINE
     Indication: MANTLE CELL LYMPHOMA
     Dosage: NP
     Route: 042
     Dates: start: 20171025, end: 20171227
  2. CYCLOPHOSPHAMIDE SANDOZ [Suspect]
     Active Substance: CYCLOPHOSPHAMIDE
     Indication: MANTLE CELL LYMPHOMA
     Dosage: NP
     Route: 042
     Dates: start: 20171025, end: 20171227
  3. DOXORUBICINE TEVA [Suspect]
     Active Substance: DOXORUBICIN
     Indication: MANTLE CELL LYMPHOMA
     Route: 042
     Dates: start: 20171025, end: 20171227
  4. PREDNISOLONE. [Suspect]
     Active Substance: PREDNISOLONE
     Indication: MANTLE CELL LYMPHOMA
     Route: 048
     Dates: start: 20171025, end: 20171231
  5. MABTHERA [Suspect]
     Active Substance: RITUXIMAB
     Indication: MANTLE CELL LYMPHOMA
     Route: 042
     Dates: start: 20171025, end: 20171227

REACTIONS (3)
  - Immunosuppression [Recovered/Resolved]
  - Pneumocystis jirovecii pneumonia [Recovering/Resolving]
  - Lymphopenia [Recovered/Resolved]

NARRATIVE: CASE EVENT DATE: 20180119
